FAERS Safety Report 10880458 (Version 5)
Quarter: 2015Q2

REPORT INFORMATION
  Report Type: Spontaneous
  Country: IT (occurrence: IT)
  Receive Date: 20150303
  Receipt Date: 20150410
  Transmission Date: 20150821
  Serious: Yes (Life-Threatening, Hospitalization, Disabling)
  Sender: FDA-Public Use
  Company Number: IT-ROCHE-1545974

PATIENT
  Age: 42 Year
  Sex: Female
  Weight: 72 kg

DRUGS (6)
  1. ROACTEMRA [Suspect]
     Active Substance: TOCILIZUMAB
     Route: 042
     Dates: start: 20140911
  2. ROACTEMRA [Suspect]
     Active Substance: TOCILIZUMAB
     Route: 042
     Dates: start: 20140805
  3. ROACTEMRA [Suspect]
     Active Substance: TOCILIZUMAB
     Route: 042
     Dates: start: 20140610
  4. ROACTEMRA [Suspect]
     Active Substance: TOCILIZUMAB
     Route: 042
     Dates: start: 20140708
  5. DELTACORTENE [Concomitant]
     Active Substance: PREDNISONE
     Dosage: ^5 MG TABLETS^ 10 TABLETS
     Route: 048
  6. ROACTEMRA [Suspect]
     Active Substance: TOCILIZUMAB
     Indication: RHEUMATOID ARTHRITIS
     Dosage: 400MG AND 200MG.  LAST INFUSION ON SEP/2014
     Route: 042
     Dates: start: 20130501, end: 20140901

REACTIONS (2)
  - Genital neoplasm malignant female [Not Recovered/Not Resolved]
  - Peritoneal carcinoma metastatic [Unknown]

NARRATIVE: CASE EVENT DATE: 20141001
